FAERS Safety Report 10634775 (Version 2)
Quarter: 2014Q4

REPORT INFORMATION
  Report Type: Report from Study
  Country: DK (occurrence: DK)
  Receive Date: 20141205
  Receipt Date: 20141205
  Transmission Date: 20150529
  Serious: Yes (Hospitalization)
  Sender: FDA-Public Use
  Company Number: DK-B.I. PHARMACEUTICALS,INC./RIDGEFIELD-2014-BI-07514BI

PATIENT
  Age: 74 Year
  Sex: Male
  Weight: 95 kg

DRUGS (14)
  1. PEMETREXED [Suspect]
     Active Substance: PEMETREXED
     Dosage: 1030 MG
     Route: 042
     Dates: start: 20140304, end: 20140304
  2. PEMETREXED [Suspect]
     Active Substance: PEMETREXED
     Indication: PLEURAL MESOTHELIOMA MALIGNANT
     Dosage: 49.0476 MG
     Route: 065
     Dates: start: 20140210
  3. INNOHEP [Concomitant]
     Active Substance: TINZAPARIN SODIUM
     Indication: PROPHYLAXIS
     Dosage: DOSE PER APPLICATION AND DAILY DOSE: 4500 IE
     Route: 058
     Dates: start: 20140310, end: 20140311
  4. BIBF 1120 [Suspect]
     Active Substance: NINTEDANIB
     Indication: PLEURAL MESOTHELIOMA MALIGNANT
     Dosage: 200 MG
     Route: 065
     Dates: start: 20140211
  5. CISPLATIN. [Suspect]
     Active Substance: CISPLATIN
     Dosage: 120 MG
     Route: 042
     Dates: start: 20140304, end: 20140304
  6. ALFUZOSIN [Concomitant]
     Active Substance: ALFUZOSIN
     Indication: BENIGN PROSTATIC HYPERPLASIA
     Dosage: 10 MG
     Route: 048
     Dates: start: 20131220
  7. UNIKALK [Concomitant]
     Indication: PRODUCT USED FOR UNKNOWN INDICATION
     Route: 065
     Dates: start: 20140210
  8. AMLODIPIN [Concomitant]
     Active Substance: AMLODIPINE BESYLATE
     Indication: HYPERTENSION
     Dosage: 5 MG
     Route: 048
     Dates: start: 20131220
  9. BIBF 1120 [Suspect]
     Active Substance: NINTEDANIB
     Dosage: DAILY DOSE: 200MGX2
     Route: 048
     Dates: start: 20140305
  10. MEPOPROLOL SUCCINAT [Concomitant]
     Indication: HYPERTENSION
     Dosage: 50 MG
     Route: 048
     Dates: start: 20131220
  11. FOLINSYRE [Concomitant]
     Indication: CHEMOTHERAPY
     Dosage: 0.4 MG
     Route: 048
     Dates: start: 20140205
  12. KODEIN [Concomitant]
     Active Substance: CODEINE PHOSPHATE
     Indication: COUGH
     Dosage: DAILY DOSE: 25 MG PN
     Route: 048
     Dates: start: 20140224
  13. CISPLATIN. [Suspect]
     Active Substance: CISPLATIN
     Indication: PLEURAL MESOTHELIOMA MALIGNANT
     Dosage: 7.3571 MG
     Route: 065
     Dates: start: 20140210
  14. CALCIUM [Concomitant]
     Active Substance: CALCIUM
     Indication: CHEMOTHERAPY
     Dosage: 1 ANZ
     Route: 048
     Dates: start: 20140210

REACTIONS (4)
  - Atrial fibrillation [Recovered/Resolved]
  - Febrile neutropenia [Recovered/Resolved]
  - Pyrexia [Recovered/Resolved]
  - Fibrin D dimer increased [Recovered/Resolved]

NARRATIVE: CASE EVENT DATE: 20140217
